FAERS Safety Report 21825465 (Version 1)
Quarter: 2023Q1

REPORT INFORMATION
  Report Type: Spontaneous
  Country: US (occurrence: None)
  Receive Date: 20230105
  Receipt Date: 20230105
  Transmission Date: 20230418
  Serious: Yes (Other)
  Sender: FDA-Public Use
  Company Number: None

PATIENT
  Age: 55 Year
  Sex: Female
  Weight: 71.55 kg

DRUGS (6)
  1. MOUNJARO [Suspect]
     Active Substance: TIRZEPATIDE
  2. SPIRONOLACTONE [Concomitant]
     Active Substance: SPIRONOLACTONE
  3. CYMBALTA [Concomitant]
     Active Substance: DULOXETINE HYDROCHLORIDE
  4. COREG [Concomitant]
     Active Substance: CARVEDILOL
  5. MAGNESIUM [Concomitant]
     Active Substance: MAGNESIUM
  6. probiotic (MenoFit) [Concomitant]

REACTIONS (5)
  - Ventricular extrasystoles [None]
  - Anxiety [None]
  - Weight decreased [None]
  - Blood potassium decreased [None]
  - Therapy cessation [None]

NARRATIVE: CASE EVENT DATE: 20230103
